FAERS Safety Report 16738325 (Version 11)
Quarter: 2022Q3

REPORT INFORMATION
  Report Type: Report from Study
  Country: JP (occurrence: JP)
  Receive Date: 20190825
  Receipt Date: 20220817
  Transmission Date: 20221027
  Serious: Yes (Hospitalization, Other)
  Sender: FDA-Public Use
  Company Number: JP-ONO-2019JP014056

PATIENT
  Age: 55 Year
  Sex: Female
  Weight: 46.5 kg

DRUGS (14)
  1. ETELCALCETIDE [Suspect]
     Active Substance: ETELCALCETIDE
     Indication: Hyperparathyroidism secondary
     Dosage: 5 MILLIGRAM, Q56H
     Route: 010
     Dates: start: 20180305, end: 20210212
  2. ETELCALCETIDE [Suspect]
     Active Substance: ETELCALCETIDE
     Dosage: 10 MILLIGRAM, Q56H
     Route: 065
     Dates: start: 20210215, end: 20210813
  3. ETELCALCETIDE [Suspect]
     Active Substance: ETELCALCETIDE
     Dosage: 5 MILLIGRAM, Q56H
     Route: 065
     Dates: start: 20210816, end: 20211006
  4. ETELCALCETIDE [Suspect]
     Active Substance: ETELCALCETIDE
     Dosage: 10 MILLIGRAM, Q56H
     Route: 065
     Dates: start: 20211008, end: 20220211
  5. ETELCALCETIDE [Suspect]
     Active Substance: ETELCALCETIDE
     Dosage: 15 MILLIGRAM, Q56H
     Route: 065
     Dates: start: 20220214
  6. OXAROL [Suspect]
     Active Substance: MAXACALCITOL
     Indication: Product used for unknown indication
     Dosage: 2.5 UG, Q56H
     Route: 065
     Dates: end: 20180518
  7. OXAROL [Suspect]
     Active Substance: MAXACALCITOL
     Dosage: 5 UG, Q56H
     Route: 065
     Dates: start: 20180521, end: 20181012
  8. OXAROL [Suspect]
     Active Substance: MAXACALCITOL
     Dosage: 2.5 UG, Q56H
     Route: 065
     Dates: start: 20181015, end: 20190426
  9. FOSRENOL [Concomitant]
     Active Substance: LANTHANUM CARBONATE
     Dosage: 1000 MG, EVERYDAY
     Route: 048
  10. P-tol [Concomitant]
     Dosage: 1000 MILLIGRAM, QD
     Route: 048
  11. ROCALTROL [Concomitant]
     Active Substance: CALCITRIOL
     Dosage: 1 MUG, Q56H
     Route: 065
     Dates: start: 20190429, end: 20191009
  12. ROCALTROL [Concomitant]
     Active Substance: CALCITRIOL
     Dosage: 0.5 MUG, Q56H
     Dates: start: 20191011, end: 20210212
  13. ROCALTROL [Concomitant]
     Active Substance: CALCITRIOL
     Dosage: 1 MUG, Q56H
     Dates: start: 20210215
  14. ROCALTROL [Concomitant]
     Active Substance: CALCITRIOL
     Dosage: 0.5 MUG, Q56H
     Dates: start: 20191011, end: 20210212

REACTIONS (6)
  - Angina unstable [Recovered/Resolved]
  - Shunt occlusion [Recovered/Resolved]
  - Angina unstable [Recovered/Resolved]
  - Otitis media [Recovered/Resolved]
  - COVID-19 [Recovering/Resolving]
  - Hypocalcaemia [Recovered/Resolved]

NARRATIVE: CASE EVENT DATE: 20180409
